FAERS Safety Report 12139768 (Version 2)
Quarter: 2016Q1

REPORT INFORMATION
  Report Type: Spontaneous
  Country: GB (occurrence: GB)
  Receive Date: 20160303
  Receipt Date: 20160304
  Transmission Date: 20160526
  Serious: Yes (Other)
  Sender: FDA-Public Use
  Company Number: GB-DRREDDYS-GER/UKI/16/0077332

PATIENT

DRUGS (4)
  1. OLANZAPINE. [Suspect]
     Active Substance: OLANZAPINE
  2. OLANZAPINE. [Suspect]
     Active Substance: OLANZAPINE
  3. OLANZAPINE. [Suspect]
     Active Substance: OLANZAPINE
  4. OLANZAPINE. [Suspect]
     Active Substance: OLANZAPINE
     Indication: SCHIZOPHRENIA

REACTIONS (6)
  - Overdose [Unknown]
  - Decreased appetite [Unknown]
  - Fatigue [Unknown]
  - Thinking abnormal [Unknown]
  - Suicide attempt [Unknown]
  - Therapy cessation [Unknown]
